FAERS Safety Report 4612912-4 (Version None)
Quarter: 2005Q1

REPORT INFORMATION
  Report Type: 
  Country: None (occurrence: None)
  Receive Date: 20050318
  Receipt Date: 20050311
  Transmission Date: 20050727
  Serious: Yes (Death, Hospitalization)
  Sender: FDA-Public Use
  Company Number: FR-GLAXOSMITHKLINE-B0374854A

PATIENT
  Age: 55 Year
  Sex: Male

DRUGS (10)
  1. CLAMOXYL [Suspect]
     Dosage: 2G SIX TIMES PER DAY
     Route: 048
     Dates: start: 20041222, end: 20050114
  2. FUNGIZONE [Suspect]
     Route: 042
     Dates: start: 20050104, end: 20050114
  3. GENTAMICIN [Suspect]
     Route: 042
     Dates: start: 20041222, end: 20050114
  4. CYMEVAN [Suspect]
     Indication: CYTOMEGALOVIRUS INFECTION
     Dosage: 160MG PER DAY
     Route: 048
     Dates: start: 20041214, end: 20050114
  5. FOSCAVIR [Suspect]
     Indication: CYTOMEGALOVIRUS INFECTION
     Route: 042
     Dates: start: 20041230, end: 20050114
  6. VFEND [Suspect]
     Indication: ASPERGILLOSIS
     Route: 048
     Dates: start: 20041230, end: 20050104
  7. EUPANTOL [Concomitant]
     Route: 065
     Dates: start: 20041214
  8. BACTRIM [Concomitant]
     Route: 065
     Dates: start: 20041214, end: 20041230
  9. CORTANCYL [Concomitant]
     Indication: CYTOMEGALOVIRUS INFECTION
     Route: 065
     Dates: start: 20041214, end: 20041230
  10. HEMISUCCINATE D'HYDROCORTISONE [Concomitant]
     Route: 065
     Dates: start: 20041230

REACTIONS (7)
  - ASPERGILLOSIS [None]
  - BILIRUBIN CONJUGATED INCREASED [None]
  - BONE MARROW DEPRESSION [None]
  - CHOLESTASIS [None]
  - HISTIOCYTOSIS HAEMATOPHAGIC [None]
  - MULTI-ORGAN FAILURE [None]
  - TOXIC EPIDERMAL NECROLYSIS [None]
